FAERS Safety Report 22322256 (Version 2)
Quarter: 2023Q2

REPORT INFORMATION
  Report Type: Report from Study
  Country: US (occurrence: US)
  Receive Date: 20230516
  Receipt Date: 20230517
  Transmission Date: 20230722
  Serious: No
  Sender: FDA-Public Use
  Company Number: US-002147023-NVSC2023US108386

PATIENT
  Sex: Female

DRUGS (14)
  1. METHOTREXATE [Suspect]
     Active Substance: METHOTREXATE
     Indication: Axial spondyloarthritis
     Dosage: 15 MG, QW
     Route: 048
  2. BUSPIRONE [Suspect]
     Active Substance: BUSPIRONE HYDROCHLORIDE
     Indication: Axial spondyloarthritis
     Dosage: 15 MG, BID
     Route: 065
  3. ALBUTEROL SULFATE [Suspect]
     Active Substance: ALBUTEROL SULFATE
     Indication: Axial spondyloarthritis
     Dosage: UNK UNK, PRN (2 PUFFS AS NEEDED)
     Route: 055
  4. BACLOFEN [Suspect]
     Active Substance: BACLOFEN
     Indication: Axial spondyloarthritis
     Dosage: 20 MG, BID
     Route: 048
  5. DULOXETINE [Suspect]
     Active Substance: DULOXETINE
     Indication: Axial spondyloarthritis
     Dosage: 60 MG, BID- (DELAYED RELEASE)
     Route: 065
  6. ESTRADIOL [Suspect]
     Active Substance: ESTRADIOL
     Indication: Axial spondyloarthritis
     Dosage: 1 MG, QD
     Route: 065
  7. HYDROCHLOROTHIAZIDE [Suspect]
     Active Substance: HYDROCHLOROTHIAZIDE
     Indication: Axial spondyloarthritis
     Dosage: 25 MG, PRN (AS NEEDED)
     Route: 048
  8. MONTELUKAST [Suspect]
     Active Substance: MONTELUKAST SODIUM
     Indication: Axial spondyloarthritis
     Dosage: 10 MG, QD
     Route: 048
  9. TIZANIDINE [Suspect]
     Active Substance: TIZANIDINE
     Indication: Axial spondyloarthritis
     Dosage: 4 MG, TID
     Route: 048
  10. FOLIC ACID [Suspect]
     Active Substance: FOLIC ACID
     Indication: Axial spondyloarthritis
     Dosage: 1 MG
     Route: 048
  11. VITAMIN D3 [Suspect]
     Active Substance: CHOLECALCIFEROL
     Indication: Axial spondyloarthritis
     Dosage: 50 UG, QD
     Route: 048
  12. TRAZODONE [Suspect]
     Active Substance: TRAZODONE HYDROCHLORIDE
     Indication: Axial spondyloarthritis
     Dosage: UNK
     Route: 065
  13. CYANOCOBALAMIN\FOLIC ACID [Suspect]
     Active Substance: CYANOCOBALAMIN\FOLIC ACID
     Indication: Axial spondyloarthritis
     Dosage: UNK (500/400MCG)
     Route: 061
  14. SULFASALAZINE [Concomitant]
     Active Substance: SULFASALAZINE
     Indication: Product used for unknown indication
     Dosage: UNK
     Route: 065

REACTIONS (12)
  - Drug ineffective [Unknown]
  - Joint swelling [Unknown]
  - Synovial cyst [Unknown]
  - Osteoarthritis [Unknown]
  - Alanine aminotransferase increased [Unknown]
  - Musculoskeletal stiffness [Unknown]
  - Pain [Unknown]
  - Arthralgia [Unknown]
  - Fatigue [Unknown]
  - Insomnia [Unknown]
  - Headache [Unknown]
  - Abdominal discomfort [Unknown]
